FAERS Safety Report 10502818 (Version 1)
Quarter: 2014Q4

REPORT INFORMATION
  Report Type: Spontaneous
  Country: SG (occurrence: SG)
  Receive Date: 20141007
  Receipt Date: 20141007
  Transmission Date: 20150528
  Serious: Yes (Hospitalization, Other)
  Sender: FDA-Public Use
  Company Number: SG-WATSON-2014-21323

PATIENT
  Age: 80 Year
  Sex: Male

DRUGS (1)
  1. DOXORUBICIN (UNKNOWN) [Suspect]
     Active Substance: DOXORUBICIN
     Indication: HEPATOCELLULAR CARCINOMA
     Dosage: 300 MG, CYCLICAL 3 SESSIONS
     Route: 013

REACTIONS (2)
  - Intrahepatic portal hepatic venous fistula [None]
  - Bronchial fistula [Not Recovered/Not Resolved]
